FAERS Safety Report 7907261-2 (Version None)
Quarter: 2011Q4

REPORT INFORMATION
  Report Type: 
  Country: None (occurrence: None)
  Receive Date: 20111109
  Receipt Date: 20111109
  Transmission Date: 20120403
  Serious: No
  Sender: FDA-Public Use
  Company Number: None

PATIENT
  Sex: Male
  Weight: 73.5 kg

DRUGS (3)
  1. IRINOTECAN HCL [Suspect]
     Dosage: 346 MG
     Dates: end: 20111101
  2. LEUCOVORIN CALCIUM [Suspect]
     Dosage: 768 MG
     Dates: end: 20111101
  3. FLUOROURACIL [Suspect]
     Dosage: 5376 MG
     Dates: end: 20111101

REACTIONS (1)
  - PULMONARY EMBOLISM [None]
